FAERS Safety Report 5865031-3 (Version None)
Quarter: 2008Q3

REPORT INFORMATION
  Report Type: 
  Country: None (occurrence: None)
  Receive Date: 20080829
  Receipt Date: 20080826
  Transmission Date: 20090109
  Serious: Yes (Hospitalization, Disabling)
  Sender: FDA-Public Use
  Company Number: A0699118A

PATIENT
  Age: 57 Year
  Sex: Male
  Weight: 93.2 kg

DRUGS (7)
  1. AVANDIA [Suspect]
     Dosage: 2MG PER DAY
     Route: 048
     Dates: start: 20000103, end: 20030224
  2. ACTOS [Concomitant]
     Dosage: 30MG PER DAY
     Dates: start: 20030210
  3. PRECOSE [Concomitant]
     Dates: start: 20010614, end: 20030201
  4. HUMALOG [Concomitant]
     Dates: start: 20030210
  5. GLUCOTROL XL [Concomitant]
     Dosage: 10MG TWICE PER DAY
     Dates: start: 20000313
  6. LOPRESSOR [Concomitant]
     Dosage: 50MG TWICE PER DAY
     Dates: start: 20030415
  7. HYDROCHLOROTHIAZIDE [Concomitant]
     Dates: start: 20070810

REACTIONS (5)
  - ANXIETY [None]
  - HEART INJURY [None]
  - INJURY [None]
  - MYOCARDIAL INFARCTION [None]
  - SCAR [None]
